FAERS Safety Report 12207929 (Version 1)
Quarter: 2016Q1

REPORT INFORMATION
  Report Type: Spontaneous
  Country: SG (occurrence: SG)
  Receive Date: 20160324
  Receipt Date: 20160324
  Transmission Date: 20160526
  Serious: Yes (Death, Other)
  Sender: FDA-Public Use
  Company Number: SG-AKRIMAX-TIR-2016-0331

PATIENT
  Age: 75 Year
  Sex: Male

DRUGS (1)
  1. LEVOTHYROXINE. [Suspect]
     Active Substance: LEVOTHYROXINE
     Indication: AUTOIMMUNE HYPOTHYROIDISM
     Dosage: 50MCG, OD
     Route: 065

REACTIONS (2)
  - Drug-induced liver injury [Unknown]
  - Pneumonia [Fatal]
